FAERS Safety Report 23459515 (Version 3)
Quarter: 2024Q1

REPORT INFORMATION
  Report Type: Spontaneous
  Country: US (occurrence: US)
  Receive Date: 20240131
  Receipt Date: 20240229
  Transmission Date: 20240410
  Serious: No
  Sender: FDA-Public Use
  Company Number: US-BAUSCHBL-2024BNL000953

PATIENT
  Age: 89 Year
  Sex: Female
  Weight: 63.5 kg

DRUGS (6)
  1. ERYTHROMYCIN [Suspect]
     Active Substance: ERYTHROMYCIN
     Indication: Corneal erosion
     Dosage: AS NEEDED
     Route: 065
  2. ERYTHROMYCIN [Suspect]
     Active Substance: ERYTHROMYCIN
     Indication: Discomfort
  3. ERYTHROMYCIN [Suspect]
     Active Substance: ERYTHROMYCIN
     Indication: Off label use
  4. PREDNISOLONE SODIUM PHOSPHATE\SULFACETAMIDE SODIUM [Suspect]
     Active Substance: PREDNISOLONE SODIUM PHOSPHATE\SULFACETAMIDE SODIUM
     Indication: Corneal erosion
     Dosage: AS NEEDED
     Route: 047
  5. PREDNISOLONE SODIUM PHOSPHATE\SULFACETAMIDE SODIUM [Suspect]
     Active Substance: PREDNISOLONE SODIUM PHOSPHATE\SULFACETAMIDE SODIUM
     Indication: Discomfort
  6. PREDNISOLONE SODIUM PHOSPHATE\SULFACETAMIDE SODIUM [Suspect]
     Active Substance: PREDNISOLONE SODIUM PHOSPHATE\SULFACETAMIDE SODIUM
     Indication: Off label use

REACTIONS (3)
  - Eye irritation [Unknown]
  - Off label use [Unknown]
  - Product availability issue [Unknown]
